FAERS Safety Report 24920229 (Version 4)
Quarter: 2025Q4

REPORT INFORMATION
  Report Type: Report from Study
  Country: CA (occurrence: CA)
  Receive Date: 20250204
  Receipt Date: 20251001
  Transmission Date: 20260118
  Serious: Yes (Hospitalization)
  Sender: CSL BEHRING
  Company Number: CA-BEH-2025193982

PATIENT
  Age: 65 Year
  Sex: Male
  Weight: 70 kg

DRUGS (17)
  1. HIZENTRA [Suspect]
     Active Substance: HUMAN IMMUNOGLOBULIN G
     Indication: Secondary immunodeficiency
     Dosage: 7 G, QW
     Route: 065
     Dates: start: 20250121
  2. HIZENTRA [Suspect]
     Active Substance: HUMAN IMMUNOGLOBULIN G
     Dosage: 7 G, QW
     Route: 058
     Dates: start: 20250121
  3. HIZENTRA [Suspect]
     Active Substance: HUMAN IMMUNOGLOBULIN G
     Dosage: 7 G, QW
     Route: 058
     Dates: start: 20250121
  4. AZITHROMYCIN [Concomitant]
     Active Substance: AZITHROMYCIN
  5. CALCIUM [Concomitant]
     Active Substance: CALCIUM
  6. VITAMIN D [Concomitant]
     Active Substance: VITAMIN D NOS
  7. GABAPENTIN [Concomitant]
     Active Substance: GABAPENTIN
  8. MAGNESIUM [Concomitant]
     Active Substance: MAGNESIUM
  9. VITAMINS [Concomitant]
     Active Substance: VITAMINS
  10. MYCOPHENOLIC ACID [Concomitant]
     Active Substance: MYCOPHENOLIC ACID
  11. PANTOPRAZOLE SODIUM [Concomitant]
     Active Substance: PANTOPRAZOLE SODIUM
  12. PREDNISONE [Concomitant]
     Active Substance: PREDNISONE
  13. ROSUVASTATIN [Concomitant]
     Active Substance: ROSUVASTATIN
  14. TACROLIMUS [Concomitant]
     Active Substance: TACROLIMUS
  15. VALACYCLOVIR HYDROCHLORIDE [Concomitant]
     Active Substance: VALACYCLOVIR HYDROCHLORIDE
  16. VITAMIN C [Concomitant]
     Active Substance: ASCORBIC ACID
  17. PERCOCET [Concomitant]
     Active Substance: ACETAMINOPHEN\OXYCODONE HYDROCHLORIDE

REACTIONS (7)
  - Cognitive disorder [Unknown]
  - Therapy interrupted [Unknown]
  - Emergency care [Unknown]
  - Malaise [Unknown]
  - Poor venous access [Unknown]
  - Weight decreased [Unknown]
  - Mood altered [Unknown]

NARRATIVE: CASE EVENT DATE: 20250122
